FAERS Safety Report 6816546-2 (Version None)
Quarter: 2010Q3

REPORT INFORMATION
  Report Type: 
  Country: None (occurrence: None)
  Receive Date: 20100706
  Receipt Date: 20100623
  Transmission Date: 20110219
  Serious: Yes (Hospitalization, Other)
  Sender: FDA-Public Use
  Company Number: PHHY2009AU50721

PATIENT
  Sex: Male

DRUGS (1)
  1. CLOZARIL [Suspect]
     Dosage: 650 MG, UNK
     Route: 048
     Dates: start: 20091116, end: 20091116

REACTIONS (4)
  - ACCIDENTAL EXPOSURE [None]
  - COMA SCALE ABNORMAL [None]
  - DRUG ADMINISTRATION ERROR [None]
  - LOSS OF CONSCIOUSNESS [None]
